FAERS Safety Report 9180918 (Version 2)
Quarter: 2013Q2

REPORT INFORMATION
  Report Type: Spontaneous
  Country: US (occurrence: US)
  Receive Date: 20130322
  Receipt Date: 20130404
  Transmission Date: 20140414
  Serious: No
  Sender: FDA-Public Use
  Company Number: PHEH2013US006614

PATIENT
  Age: 59 Year
  Sex: Female
  Weight: 78 kg

DRUGS (5)
  1. SANDOSTATIN LAR DEPOT [Suspect]
     Indication: ACROMEGALY
     Dosage: 30 MG, EVERY 4 WEEKS
     Route: 030
     Dates: start: 20120817
  2. LOSARTAN HCT [Concomitant]
     Dosage: 50 MG LOSARTAN/ 12.5 MG HCTZ
  3. CYMBALTA [Concomitant]
     Dosage: 20 MG, QD
  4. ZYRTEC [Concomitant]
     Dosage: 10 MG, QD
  5. ASA [Concomitant]
     Dosage: 81 MG, QD

REACTIONS (3)
  - Kidney infection [Recovered/Resolved]
  - Back pain [Recovered/Resolved]
  - Abdominal pain lower [Recovered/Resolved]
